FAERS Safety Report 13688670 (Version 1)
Quarter: 2017Q2

REPORT INFORMATION
  Report Type: Report from Study
  Country: CO (occurrence: CO)
  Receive Date: 20170626
  Receipt Date: 20170626
  Transmission Date: 20170830
  Serious: Yes (Other)
  Sender: FDA-Public Use
  Company Number: CO-AMGEN-COLSL2017081896

PATIENT
  Age: 14 Year
  Sex: Male

DRUGS (2)
  1. ARANESP [Suspect]
     Active Substance: DARBEPOETIN ALFA
     Indication: NEPHROGENIC ANAEMIA
     Dosage: 25 MUG, Q2WK
     Route: 058
     Dates: start: 20170324
  2. ARANESP [Suspect]
     Active Substance: DARBEPOETIN ALFA
     Dosage: 35 MUG, Q2WK
     Route: 058

REACTIONS (2)
  - Iron deficiency [Not Recovered/Not Resolved]
  - Serum ferritin abnormal [Unknown]

NARRATIVE: CASE EVENT DATE: 2017
